FAERS Safety Report 8464730-7 (Version None)
Quarter: 2012Q2

REPORT INFORMATION
  Report Type: 
  Country: None (occurrence: None)
  Receive Date: 20120626
  Receipt Date: 20120624
  Transmission Date: 20120825
  Serious: Yes (Other)
  Sender: FDA-Public Use
  Company Number: US-PFIZER INC-2012151708

PATIENT
  Sex: Female

DRUGS (5)
  1. EFFEXOR [Suspect]
     Dosage: 75 MG, 1X/DAY
     Dates: start: 20120101, end: 20120601
  2. EFFEXOR [Suspect]
     Indication: DEPRESSION
     Dosage: 75 MG, 1X/DAY
     Dates: start: 20120101, end: 20120101
  3. EFFEXOR [Suspect]
     Dosage: 37.5 MG, 1X/DAY
     Dates: start: 20120601, end: 20120601
  4. ZOLOFT [Suspect]
     Dosage: UNK
  5. EFFEXOR [Suspect]
     Dosage: 150 MG, 1X/DAY
     Dates: start: 20120101, end: 20120101

REACTIONS (5)
  - HYPERTENSION [None]
  - PAIN [None]
  - WITHDRAWAL SYNDROME [None]
  - DRUG INEFFECTIVE [None]
  - PAIN IN EXTREMITY [None]
